FAERS Safety Report 6436199-5 (Version None)
Quarter: 2009Q4

REPORT INFORMATION
  Report Type: 
  Country: None (occurrence: None)
  Receive Date: 20091111
  Receipt Date: 20091106
  Transmission Date: 20100525
  Serious: Yes (Hospitalization)
  Sender: FDA-Public Use
  Company Number: IT-MERCK-0909ITA00032

PATIENT
  Age: 89 Year
  Sex: Female

DRUGS (4)
  1. MODURETIC 5-50 [Suspect]
     Route: 048
     Dates: start: 20080824
  2. HYDROCHLOROTHIAZIDE AND IRBESARTAN [Suspect]
     Route: 048
     Dates: start: 20080824, end: 20090824
  3. ASPIRIN LYSINE [Concomitant]
     Route: 048
  4. BISOPROLOL FUMARATE [Concomitant]
     Route: 065

REACTIONS (5)
  - ABDOMINAL PAIN UPPER [None]
  - DEHYDRATION [None]
  - HEADACHE [None]
  - HYPONATRAEMIA [None]
  - VERTIGO [None]
